FAERS Safety Report 12265018 (Version 1)
Quarter: 2016Q2

REPORT INFORMATION
  Report Type: Spontaneous
  Country: FR (occurrence: FR)
  Receive Date: 20160413
  Receipt Date: 20160413
  Transmission Date: 20160815
  Serious: Yes (Hospitalization)
  Sender: FDA-Public Use
  Company Number: FR-SA-2016SA071495

PATIENT
  Age: 64 Year
  Sex: Male

DRUGS (11)
  1. EVOLTRA [Suspect]
     Active Substance: CLOFARABINE
     Indication: CHEMOTHERAPY
     Route: 042
     Dates: start: 20160304, end: 20160308
  2. TARGOCID [Concomitant]
     Active Substance: TEICOPLANIN
     Dates: start: 20160317, end: 20160325
  3. ZELITREX [Concomitant]
     Active Substance: VALACYCLOVIR HYDROCHLORIDE
  4. TIENAM [Concomitant]
     Active Substance: CILASTATIN SODIUM\IMIPENEM
     Indication: INFECTION
  5. LEDERFOLINE [Concomitant]
     Active Substance: LEUCOVORIN CALCIUM
  6. TOPALGIC [Concomitant]
     Active Substance: TRAMADOL
     Dates: start: 20160321
  7. CYTARABINE. [Suspect]
     Active Substance: CYTARABINE
     Indication: CHEMOTHERAPY
     Route: 042
     Dates: start: 20160303, end: 20160307
  8. CLAMOXYL [Concomitant]
     Active Substance: AMOXICILLIN\CLAVULANIC ACID
  9. OLMETEC [Concomitant]
     Active Substance: OLMESARTAN MEDOXOMIL
  10. CUBICIN [Concomitant]
     Active Substance: DAPTOMYCIN
     Dates: start: 20160325
  11. DOMPERIDONE [Concomitant]
     Active Substance: DOMPERIDONE
     Dates: start: 20160322, end: 20160323

REACTIONS (1)
  - Confusional state [Recovered/Resolved]

NARRATIVE: CASE EVENT DATE: 20160322
